FAERS Safety Report 22115615 (Version 1)
Quarter: 2023Q1

REPORT INFORMATION
  Report Type: Spontaneous
  Country: CA (occurrence: CA)
  Receive Date: 20230320
  Receipt Date: 20230320
  Transmission Date: 20230417
  Serious: Yes (Other)
  Sender: FDA-Public Use
  Company Number: CA-PFIZER INC-202300071856

PATIENT
  Age: 66 Year
  Sex: Female

DRUGS (1)
  1. ABRILADA [Suspect]
     Active Substance: ADALIMUMAB-AFZB
     Indication: Crohn^s disease
     Dosage: 40 MG, EVERY 14 DAYS, (PREFILLED SYRINGE)
     Route: 058
     Dates: start: 20220617

REACTIONS (13)
  - Herpes ophthalmic [Unknown]
  - Viral sinusitis [Not Recovered/Not Resolved]
  - Rotator cuff syndrome [Not Recovered/Not Resolved]
  - Obstructive pancreatitis [Not Recovered/Not Resolved]
  - Polyneuropathy [Not Recovered/Not Resolved]
  - Hypoaesthesia [Not Recovered/Not Resolved]
  - Off label use [Unknown]
  - Herpes virus infection [Not Recovered/Not Resolved]
  - Infection [Unknown]
  - Spinal stenosis [Not Recovered/Not Resolved]
  - Paraesthesia [Not Recovered/Not Resolved]
  - Vaginal infection [Not Recovered/Not Resolved]
  - Gingivitis [Not Recovered/Not Resolved]

NARRATIVE: CASE EVENT DATE: 20221201
